FAERS Safety Report 6793297-4 (Version None)
Quarter: 2010Q2

REPORT INFORMATION
  Report Type: 
  Country: None (occurrence: None)
  Receive Date: 20100624
  Receipt Date: 20091109
  Transmission Date: 20101027
  Serious: Yes (Other)
  Sender: FDA-Public Use
  Company Number: US-MYLANLABS-2009S1019145

PATIENT
  Age: 49 Year
  Sex: Female

DRUGS (6)
  1. CLOZAPINE [Suspect]
     Route: 048
     Dates: start: 20091027, end: 20091029
  2. CLOZAPINE [Suspect]
     Route: 048
     Dates: start: 20091029, end: 20091102
  3. TRICOR [Concomitant]
     Route: 048
  4. TRICOR [Concomitant]
     Route: 048
  5. DOCUSATE [Concomitant]
     Route: 048
  6. M.V.I. [Concomitant]
     Route: 048

REACTIONS (2)
  - GRANULOCYTOPENIA [None]
  - LEUKOPENIA [None]
